FAERS Safety Report 5724131-9 (Version None)
Quarter: 2008Q2

REPORT INFORMATION
  Report Type: 
  Country: None (occurrence: None)
  Receive Date: 20080430
  Receipt Date: 20080422
  Transmission Date: 20081010
  Serious: Yes (Death, Hospitalization)
  Sender: FDA-Public Use
  Company Number: FR-BOEHRINGER INGELHEIM GMBH, GERMANY-2008-FF-00327FF

PATIENT
  Sex: Female

DRUGS (7)
  1. CATAPRES [Suspect]
     Route: 048
     Dates: start: 20040101, end: 20071016
  2. SINTROM [Concomitant]
     Route: 048
  3. LASILIX [Concomitant]
     Route: 048
     Dates: start: 20040101, end: 20071016
  4. IRBESARTAN [Concomitant]
     Route: 048
     Dates: start: 20040101, end: 20071016
  5. CHRONADALATE [Concomitant]
     Route: 048
     Dates: start: 20071016
  6. HYDREA [Concomitant]
     Route: 048
     Dates: start: 19990101, end: 20071016
  7. FENOFIBRATE [Concomitant]
     Route: 048
     Dates: start: 20040101, end: 20071016

REACTIONS (3)
  - FALL [None]
  - MALAISE [None]
  - SUBDURAL HAEMATOMA [None]
